FAERS Safety Report 8562291-5 (Version None)
Quarter: 2012Q3

REPORT INFORMATION
  Report Type: 
  Country: None (occurrence: None)
  Receive Date: 20120802
  Receipt Date: 20120711
  Transmission Date: 20120928
  Serious: No
  Sender: FDA-Public Use
  Company Number: US-AMGEN-USASP2012043262

PATIENT
  Age: 47 Year
  Sex: Male

DRUGS (1)
  1. ENBREL [Suspect]
     Indication: PSORIASIS
     Dosage: 50 MG, QWK
     Dates: start: 20030301

REACTIONS (6)
  - MUSCLE TWITCHING [None]
  - PSORIASIS [None]
  - DIZZINESS [None]
  - ANXIETY [None]
  - PROSTATITIS [None]
  - NAUSEA [None]
